FAERS Safety Report 15606850 (Version 1)
Quarter: 2018Q4

REPORT INFORMATION
  Report Type: Spontaneous
  Country: US (occurrence: US)
  Receive Date: 20181111
  Receipt Date: 20181111
  Transmission Date: 20190205
  Serious: Yes (Other)
  Sender: FDA-Public Use
  Company Number: None

PATIENT
  Age: 10 Year
  Sex: Male
  Weight: 29.7 kg

DRUGS (1)
  1. GAMMAGARD [Suspect]
     Active Substance: HUMAN IMMUNOGLOBULIN G
     Indication: IMMUNE SYSTEM DISORDER
     Dosage: ?          OTHER FREQUENCY:INITIAL INFUSION;?
     Route: 042
     Dates: start: 20181106, end: 20181106

REACTIONS (3)
  - Vomiting [None]
  - Nausea [None]
  - Headache [None]

NARRATIVE: CASE EVENT DATE: 20181109
